FAERS Safety Report 20642176 (Version 2)
Quarter: 2022Q2

REPORT INFORMATION
  Report Type: Spontaneous
  Country: US (occurrence: US)
  Receive Date: 20220328
  Receipt Date: 20220516
  Transmission Date: 20220721
  Serious: No
  Sender: FDA-Public Use
  Company Number: US-Kaleo, Inc.-2022KL000019

PATIENT
  Age: 10 Year
  Sex: Male

DRUGS (1)
  1. AUVI-Q [Suspect]
     Active Substance: EPINEPHRINE

REACTIONS (3)
  - No device malfunction [Not Recovered/Not Resolved]
  - No device malfunction [Not Recovered/Not Resolved]
  - No device malfunction [Not Recovered/Not Resolved]
